FAERS Safety Report 17910032 (Version 5)
Quarter: 2025Q3

REPORT INFORMATION
  Report Type: Report from Study
  Country: BR (occurrence: BR)
  Receive Date: 20200618
  Receipt Date: 20250819
  Transmission Date: 20251020
  Serious: Yes (Hospitalization, Other)
  Sender: ROCHE
  Company Number: BR-ROCHE-2544492

PATIENT
  Age: 37 Year
  Sex: Male
  Weight: 72 kg

DRUGS (9)
  1. PULMOZYME [Suspect]
     Active Substance: DORNASE ALFA
     Indication: Cystic fibrosis
     Route: 065
     Dates: start: 199901
  2. PULMOZYME [Suspect]
     Active Substance: DORNASE ALFA
     Route: 065
     Dates: start: 2010, end: 202004
  3. BACTRIM [Suspect]
     Active Substance: SULFAMETHOXAZOLE\TRIMETHOPRIM
     Indication: Product used for unknown indication
     Route: 065
  4. PREDNISOLONE [Suspect]
     Active Substance: PREDNISOLONE
     Indication: Product used for unknown indication
     Route: 065
  5. MEROPENEM [Concomitant]
     Active Substance: MEROPENEM
  6. CREON [Concomitant]
     Active Substance: PANCRELIPASE AMYLASE\PANCRELIPASE LIPASE\PANCRELIPASE PROTEASE
     Indication: Cystic fibrosis
  7. ATENOLOL [Concomitant]
     Active Substance: ATENOLOL
     Indication: Arrhythmia
  8. PREDNISONE [Concomitant]
     Active Substance: PREDNISONE
  9. OMEPRAZOLE [Concomitant]
     Active Substance: OMEPRAZOLE

REACTIONS (18)
  - Dependence on oxygen therapy [Unknown]
  - Cough [Unknown]
  - Insomnia [Unknown]
  - Oxygen saturation decreased [Unknown]
  - Fatigue [Unknown]
  - COVID-19 [Unknown]
  - Swelling [Unknown]
  - Peripheral swelling [Unknown]
  - Pulmonary oedema [Unknown]
  - Pseudomonas infection [Unknown]
  - Bacterial infection [Unknown]
  - Lung transplant rejection [Recovered/Resolved]
  - Dyspnoea [Recovering/Resolving]
  - Diabetes mellitus [Unknown]
  - Myalgia [Not Recovered/Not Resolved]
  - Drug hypersensitivity [Recovering/Resolving]
  - Drug hypersensitivity [Recovering/Resolving]
  - Food allergy [Recovered/Resolved]

NARRATIVE: CASE EVENT DATE: 20150101
